FAERS Safety Report 6287477-4 (Version None)
Quarter: 2009Q3

REPORT INFORMATION
  Report Type: 
  Country: None (occurrence: None)
  Receive Date: 20090728
  Receipt Date: 20090721
  Transmission Date: 20100115
  Serious: Yes (Other)
  Sender: FDA-Public Use
  Company Number: US-MERCK-0907USA03900

PATIENT
  Age: 53 Year
  Sex: Male

DRUGS (1)
  1. PRIMAXIN [Suspect]
     Indication: BACTERIAL INFECTION
     Route: 065

REACTIONS (1)
  - PARTIAL SEIZURES [None]
